FAERS Safety Report 20572745 (Version 5)
Quarter: 2022Q4

REPORT INFORMATION
  Report Type: Spontaneous
  Country: GB (occurrence: GB)
  Receive Date: 20220309
  Receipt Date: 20221020
  Transmission Date: 20230112
  Serious: Yes (Hospitalization)
  Sender: FDA-Public Use
  Company Number: GB-NOVARTISPH-NVSC2022GB053207

PATIENT
  Age: 53 Year
  Sex: Female
  Weight: 78 kg

DRUGS (57)
  1. DEXAMETHASONE [Suspect]
     Active Substance: DEXAMETHASONE
     Indication: Plasma cell myeloma
     Dosage: 20 MG
     Route: 048
     Dates: start: 20210611
  2. DEXAMETHASONE [Suspect]
     Active Substance: DEXAMETHASONE
     Dosage: UNK
     Route: 065
     Dates: start: 20210622
  3. DEXAMETHASONE [Suspect]
     Active Substance: DEXAMETHASONE
     Dosage: 20 MG
     Route: 048
     Dates: start: 20210624
  4. BORTEZOMIB [Suspect]
     Active Substance: BORTEZOMIB
     Indication: Plasma cell myeloma
     Dosage: 2.25 MG
     Route: 058
     Dates: start: 20210611, end: 20210611
  5. BORTEZOMIB [Suspect]
     Active Substance: BORTEZOMIB
     Dosage: 2.25 MG
     Route: 058
     Dates: start: 20210621
  6. POMALIDOMIDE [Suspect]
     Active Substance: POMALIDOMIDE
     Indication: Plasma cell myeloma
     Dosage: 4 MG, QD
     Route: 048
     Dates: start: 20210611, end: 20210624
  7. POMALIDOMIDE [Suspect]
     Active Substance: POMALIDOMIDE
     Dosage: 4 MG, QD
     Route: 048
     Dates: start: 20210611, end: 20220613
  8. POMALYST [Suspect]
     Active Substance: POMALIDOMIDE
     Indication: Plasma cell myeloma
     Dosage: 4 MG
     Route: 048
     Dates: start: 20210611, end: 20210613
  9. POMALYST [Suspect]
     Active Substance: POMALIDOMIDE
     Dosage: 4 MG
     Route: 048
     Dates: start: 20210624
  10. ACYCLOVIR [Concomitant]
     Active Substance: ACYCLOVIR
     Indication: Antiviral prophylaxis
     Dosage: 400 MG, (800 MILLIGRAM)
     Route: 048
  11. AMITRIPTYLINE [Concomitant]
     Active Substance: AMITRIPTYLINE
     Indication: Peripheral sensory neuropathy
     Dosage: 20 MG, QD (CUMULATIVE DOSE TO FIRST REACTION (NUMBER) 1200)
     Route: 048
     Dates: start: 20210414, end: 20211103
  12. CARBOMER [Concomitant]
     Active Substance: CARBOMER
     Indication: Dry eye
     Dosage: FREQUENCY TEXT: 1 GTT, AS REQUIRED
     Route: 047
     Dates: start: 20171030, end: 20210613
  13. CYCLOPHOSPHAMIDE [Concomitant]
     Active Substance: CYCLOPHOSPHAMIDE
     Indication: Plasma cell myeloma
     Dosage: UNK
     Route: 016
  14. DALTEPARIN [Concomitant]
     Active Substance: DALTEPARIN
     Indication: Thrombosis prophylaxis
     Dosage: FORM STRENGTH : 5000
     Route: 058
     Dates: start: 20210612
  15. BUDESONIDE\FORMOTEROL [Concomitant]
     Active Substance: BUDESONIDE\FORMOTEROL
     Indication: Asthma prophylaxis
     Dosage: UNK, BID (160/4.5)
     Route: 065
     Dates: start: 20150911
  16. BUDESONIDE\FORMOTEROL [Concomitant]
     Active Substance: BUDESONIDE\FORMOTEROL
     Dosage: UNK
     Route: 065
  17. BUDESONIDE\FORMOTEROL [Concomitant]
     Active Substance: BUDESONIDE\FORMOTEROL
     Dosage: 10 MG, QD
     Route: 065
     Dates: start: 20210524
  18. FEXOFENADINE [Concomitant]
     Active Substance: FEXOFENADINE HYDROCHLORIDE
     Indication: Seasonal allergy
     Dosage: 180 MILLIGRAM
     Route: 048
     Dates: start: 20050901
  19. FLUDARABINE [Concomitant]
     Active Substance: FLUDARABINE PHOSPHATE
     Indication: Plasma cell myeloma
     Dosage: UNK
     Route: 065
  20. FUROSEMIDE [Concomitant]
     Active Substance: FUROSEMIDE
     Indication: Diuretic therapy
     Dosage: FREQUENCY TEXT: AS REQUIRED
     Route: 048
     Dates: start: 20210426, end: 20210613
  21. GABAPENTIN [Concomitant]
     Active Substance: GABAPENTIN
     Indication: Peripheral sensory neuropathy
     Dosage: 600 MG, QD
     Route: 048
  22. GABAPENTIN [Concomitant]
     Active Substance: GABAPENTIN
     Dosage: 300 MG (600 MILLIGRAM)
     Route: 048
     Dates: end: 20210729
  23. GABAPENTIN [Concomitant]
     Active Substance: GABAPENTIN
     Dosage: 300 MG (900 MILLIGRAM)
     Route: 048
     Dates: start: 20210507, end: 20210817
  24. MONTELUKAST [Concomitant]
     Active Substance: MONTELUKAST SODIUM
     Indication: Asthma prophylaxis
     Dosage: 10 MG, QD
     Route: 048
     Dates: start: 20210524
  25. MORPHINE SULFATE [Concomitant]
     Active Substance: MORPHINE SULFATE
     Indication: Back pain
     Dosage: 60 MG, BID (120 MG)
     Route: 065
     Dates: start: 20210604
  26. MORPHINE SULFATE [Concomitant]
     Active Substance: MORPHINE SULFATE
     Indication: Musculoskeletal chest pain
     Dosage: 25 MG, BID (50 MG)
     Route: 048
     Dates: start: 20210613
  27. MORPHINE SULFATE [Concomitant]
     Active Substance: MORPHINE SULFATE
     Dosage: 10 MG, PRN
     Route: 048
     Dates: start: 20210614
  28. MORPHINE SULFATE [Concomitant]
     Active Substance: MORPHINE SULFATE
     Dosage: 10 MG, PRN
     Route: 048
     Dates: start: 20210616
  29. MORPHINE SULFATE [Concomitant]
     Active Substance: MORPHINE SULFATE
     Dosage: 60 MG, BID (120 MG)
     Route: 065
     Dates: start: 20210626
  30. MORPHINE SULFATE [Concomitant]
     Active Substance: MORPHINE SULFATE
     Dosage: 60 MG, BID (120 MG)
     Route: 065
     Dates: start: 20210629
  31. MORPHINE SULFATE [Concomitant]
     Active Substance: MORPHINE SULFATE
     Dosage: 60 MG, BID (120 MG)
     Route: 065
     Dates: start: 20210630
  32. NITROFURANTOIN [Concomitant]
     Active Substance: NITROFURANTOIN
     Indication: Urinary tract infection
     Dosage: 100 MG, BID
     Route: 065
     Dates: start: 20210609
  33. NITROFURANTOIN [Concomitant]
     Active Substance: NITROFURANTOIN
     Dosage: 100 MG, BID
     Route: 065
     Dates: start: 20210615
  34. NITROFURANTOIN [Concomitant]
     Active Substance: NITROFURANTOIN
     Dosage: 100 MG  (200 MG)
     Route: 048
     Dates: start: 20210706, end: 20210708
  35. NITROFURANTOIN [Concomitant]
     Active Substance: NITROFURANTOIN
     Dosage: 100 MG  (200 MG)
     Route: 048
     Dates: start: 20210708, end: 20210708
  36. ACETAMINOPHEN [Concomitant]
     Active Substance: ACETAMINOPHEN
     Indication: Back pain
     Dosage: 1GM AS REQUIRED QID (4 GRAM)
     Route: 048
     Dates: start: 20140324
  37. ALBUTEROL [Concomitant]
     Active Substance: ALBUTEROL
     Indication: Asthma prophylaxis
     Dosage: UNK
     Route: 055
  38. ALBUTEROL [Concomitant]
     Active Substance: ALBUTEROL
     Dosage: 100 MCG,1 IN 1 AS REQUIRED
     Route: 065
  39. CLODRONIC ACID [Concomitant]
     Active Substance: CLODRONIC ACID
     Indication: Osteopenia
     Dosage: 1600 MILLIGRAM
     Route: 048
     Dates: start: 20210426, end: 20210614
  40. CLODRONIC ACID [Concomitant]
     Active Substance: CLODRONIC ACID
     Indication: Prophylaxis
  41. BUDESONIDE [Concomitant]
     Active Substance: BUDESONIDE
     Indication: Asthma prophylaxis
     Dosage: UNK
     Route: 065
  42. COTRIMOXAZOLE [Concomitant]
     Active Substance: SULFAMETHOXAZOLE\TRIMETHOPRIM
     Indication: Antifungal prophylaxis
     Dosage: 800/160MG  WEEKLY 1 OF 0.5 DAY
     Route: 048
     Dates: start: 20210630
  43. COTRIMOXAZOLE [Concomitant]
     Active Substance: SULFAMETHOXAZOLE\TRIMETHOPRIM
     Dosage: UNK
     Route: 048
     Dates: start: 20210726
  44. FLUCONAZOLE [Concomitant]
     Active Substance: FLUCONAZOLE
     Indication: Antifungal prophylaxis
     Dosage: 100 MG
     Route: 048
     Dates: start: 20210613
  45. POLYETHYLENE GLYCOL 3350\POTASSIUM CHLORIDE\SODIUM BICARBONATE\SODIUM [Concomitant]
     Active Substance: POLYETHYLENE GLYCOL 3350\POTASSIUM CHLORIDE\SODIUM BICARBONATE\SODIUM CHLORIDE
     Indication: Constipation prophylaxis
     Dosage: UNK
     Route: 048
     Dates: start: 20210426
  46. POLYETHYLENE GLYCOL 3350\POTASSIUM CHLORIDE\SODIUM BICARBONATE\SODIUM [Concomitant]
     Active Substance: POLYETHYLENE GLYCOL 3350\POTASSIUM CHLORIDE\SODIUM BICARBONATE\SODIUM CHLORIDE
     Dosage: UNK
     Route: 048
     Dates: start: 20210701
  47. OMEPRAZOLE [Concomitant]
     Active Substance: OMEPRAZOLE
     Indication: Hiatus hernia
     Dosage: 20 MILLIGRAM
     Route: 048
     Dates: start: 20100820
  48. ONDANSETRON [Concomitant]
     Active Substance: ONDANSETRON
     Indication: Antiemetic supportive care
     Dosage: 4 MG (8 MG)
     Route: 048
     Dates: start: 20210701
  49. ONDANSETRON [Concomitant]
     Active Substance: ONDANSETRON
     Dosage: 4 MG (8 MG)
     Route: 048
     Dates: start: 20210725
  50. MORPHINE SULFATE [Concomitant]
     Active Substance: MORPHINE SULFATE
     Indication: Back pain
     Dosage: 15 MILLIGRAM (7.5 MG BID)
     Route: 048
     Dates: start: 20210613
  51. MORPHINE SULFATE [Concomitant]
     Active Substance: MORPHINE SULFATE
     Indication: Pain
     Dosage: 60 MG
     Route: 048
     Dates: start: 20210604
  52. MORPHINE SULFATE [Concomitant]
     Active Substance: MORPHINE SULFATE
     Dosage: 60 MG
     Route: 048
     Dates: start: 20210626
  53. SENNA [Concomitant]
     Active Substance: SENNA LEAF\SENNOSIDES\SENNOSIDES A AND B
     Indication: Constipation
     Dosage: 15 MG,1 IN 1 AS REQUIRED)
     Route: 048
     Dates: end: 20210613
  54. GABAPENTIN [Concomitant]
     Active Substance: GABAPENTIN
     Indication: Peripheral sensory neuropathy
     Dosage: 600 MG, QD
     Route: 048
  55. GABAPENTIN [Concomitant]
     Active Substance: GABAPENTIN
     Dosage: 300 MG (900 MG)
     Route: 048
     Dates: start: 20210729, end: 20210817
  56. GABAPENTIN [Concomitant]
     Active Substance: GABAPENTIN
     Dosage: 300 MG (900 MILLIGRAM, 3 IN 1 DAY)
     Route: 048
     Dates: start: 20210507
  57. GABAPENTIN [Concomitant]
     Active Substance: GABAPENTIN
     Dosage: 300 MG (900 MILLIGRAM, 3 IN 1 DAY)
     Route: 048
     Dates: start: 20210817

REACTIONS (2)
  - Pneumonia [Recovered/Resolved]
  - Lower respiratory tract infection [Recovered/Resolved]

NARRATIVE: CASE EVENT DATE: 20210613
